FAERS Safety Report 8958385 (Version 2)
Quarter: 2012Q4

REPORT INFORMATION
  Report Type: 
  Country: JP (occurrence: JP)
  Receive Date: 20121210
  Receipt Date: 20121219
  Transmission Date: 20130627
  Serious: Yes (Death)
  Sender: FDA-Public Use
  Company Number: JP-GLAXOSMITHKLINE-B0744488A

PATIENT
  Sex: Male

DRUGS (1)
  1. AVOLVE [Suspect]
     Indication: BENIGN PROSTATIC HYPERPLASIA
     Dosage: .5MG Per day
     Route: 048
     Dates: start: 201003

REACTIONS (9)
  - Gynaecomastia [Recovering/Resolving]
  - Nipple pain [Recovering/Resolving]
  - Skin mass [Unknown]
  - Lymphocytic infiltration [Unknown]
  - Breast fibrosis [Unknown]
  - Ultrasound breast abnormal [Unknown]
  - Hyperplasia [Unknown]
  - Metaplasia [Unknown]
  - Subdural haematoma [Fatal]
